FAERS Safety Report 22080809 (Version 1)
Quarter: 2023Q1

REPORT INFORMATION
  Report Type: Spontaneous
  Country: FR (occurrence: FR)
  Receive Date: 20230309
  Receipt Date: 20230309
  Transmission Date: 20230417
  Serious: Yes (Other)
  Sender: FDA-Public Use
  Company Number: None

PATIENT
  Age: 80 Year
  Sex: Female
  Weight: 80.8 kg

DRUGS (20)
  1. CASPOFUNGIN ACETATE [Suspect]
     Active Substance: CASPOFUNGIN ACETATE
     Indication: Candida infection
     Dosage: 70 MILLIGRAM, QD
     Route: 042
     Dates: start: 20210205, end: 20210222
  2. NICARDIPINE HYDROCHLORIDE [Suspect]
     Active Substance: NICARDIPINE HYDROCHLORIDE
     Indication: Hypertension
     Dosage: 50 MILLIGRAM, QD
     Route: 042
     Dates: start: 20210219, end: 20210224
  3. FUROSEMIDE [Suspect]
     Active Substance: FUROSEMIDE
     Indication: Hypertension
     Dosage: 40 MILLIGRAM, QD
     Route: 042
     Dates: start: 20210204, end: 20210206
  4. FUROSEMIDE [Suspect]
     Active Substance: FUROSEMIDE
     Dosage: 40 MILLIGRAM, QD
     Route: 042
     Dates: start: 20210213, end: 20210223
  5. RAMIPRIL [Suspect]
     Active Substance: RAMIPRIL
     Indication: Hypertension
     Dosage: 5 MILLIGRAM, QD
     Route: 048
     Dates: start: 20210222, end: 20210224
  6. MEROPENEM [Suspect]
     Active Substance: MEROPENEM
     Indication: Lung disorder
     Dosage: 2 GX3/J
     Route: 042
     Dates: start: 20210212, end: 20210222
  7. VALACYCLOVIR [Suspect]
     Active Substance: VALACYCLOVIR HYDROCHLORIDE
     Indication: Antiviral prophylaxis
     Dosage: 500 MILLIGRAM, QD
     Route: 048
     Dates: start: 20210202, end: 20210301
  8. PANTOPRAZOLE [Suspect]
     Active Substance: PANTOPRAZOLE
     Indication: Gastrooesophageal reflux prophylaxis
     Dosage: 40 MILLIGRAM, QD
     Route: 048
     Dates: start: 20210202, end: 20210301
  9. ACETAMINOPHEN\GUAIFENESIN\OXOMEMAZINE\SODIUM BENZOATE [Suspect]
     Active Substance: ACETAMINOPHEN\GUAIFENESIN\OXOMEMAZINE\SODIUM BENZOATE
     Indication: Cough
     Dosage: 6 MGX4/J
     Route: 048
     Dates: start: 20210203, end: 20210224
  10. CIPROFLOXACIN [Suspect]
     Active Substance: CIPROFLOXACIN
     Indication: Lung disorder
     Dosage: 400 MGX3/J
     Route: 042
     Dates: start: 20210212, end: 20210222
  11. RILMENIDINE [Suspect]
     Active Substance: RILMENIDINE
     Indication: Hypertension
     Dosage: 1 MILLIGRAM, QD
     Route: 048
     Dates: start: 20210223, end: 20210227
  12. HYDROXYZINE HYDROCHLORIDE [Suspect]
     Active Substance: HYDROXYZINE HYDROCHLORIDE
     Indication: Anxiety
     Dosage: 50 MILLIGRAM, QD
     Route: 042
     Dates: start: 20210215
  13. OXAZEPAM [Suspect]
     Active Substance: OXAZEPAM
     Indication: Anxiety
     Dosage: 20 MILLIGRAM, QD
     Route: 048
     Dates: start: 20210209, end: 20210225
  14. METHYLPREDNISOLONE HEMISUCCINATE [Suspect]
     Active Substance: METHYLPREDNISOLONE HEMISUCCINATE
     Indication: Acute respiratory distress syndrome
     Dosage: 160 MILLIGRAM, QD
     Route: 042
     Dates: start: 20210215, end: 20210227
  15. TOCILIZUMAB [Concomitant]
     Active Substance: TOCILIZUMAB
     Dosage: UNK
  16. LOVENOX [Concomitant]
     Active Substance: ENOXAPARIN SODIUM
  17. NITROGLYCERIN [Concomitant]
     Active Substance: NITROGLYCERIN
  18. AMLODIPINE [Concomitant]
     Active Substance: AMLODIPINE BESYLATE
  19. HALDOL [Concomitant]
     Active Substance: HALOPERIDOL
  20. ZOPICLONE [Concomitant]
     Active Substance: ZOPICLONE
     Dosage: UNK

REACTIONS (2)
  - Eosinophilia [Recovering/Resolving]
  - Rash maculo-papular [Recovered/Resolved]

NARRATIVE: CASE EVENT DATE: 20210225
